FAERS Safety Report 15188148 (Version 1)
Quarter: 2018Q4

REPORT INFORMATION
  Report Type: Spontaneous
  Country: US (occurrence: US)
  Receive Date: 20180724
  Receipt Date: 20180724
  Transmission Date: 20190204
  Serious: No
  Sender: FDA-Public Use
  Company Number: US-TEVA-786874ACC

PATIENT
  Sex: Male

DRUGS (5)
  1. DIVALPROEX SODIUM DR [Suspect]
     Active Substance: DIVALPROEX SODIUM
     Indication: BIPOLAR DISORDER
  2. CLONAZEPAM. [Suspect]
     Active Substance: CLONAZEPAM
     Indication: ANXIETY
  3. ACCORD^S CLONAZEPAM [Suspect]
     Active Substance: CLONAZEPAM
     Route: 065
  4. AVI PHARMACEUTICAL^S DIVALPROEX SODIUM [Suspect]
     Active Substance: DIVALPROEX SODIUM
     Route: 065
  5. XANAX [Suspect]
     Active Substance: ALPRAZOLAM
     Route: 065

REACTIONS (11)
  - Palpitations [Unknown]
  - Formication [Unknown]
  - Skin burning sensation [Unknown]
  - Drug ineffective [Unknown]
  - Malaise [Unknown]
  - Paranoia [Unknown]
  - Hyperhidrosis [Unknown]
  - Product dispensing error [Unknown]
  - Blood pressure increased [Unknown]
  - Mania [Unknown]
  - Product substitution issue [Unknown]
